FAERS Safety Report 5090892-8 (Version None)
Quarter: 2006Q3

REPORT INFORMATION
  Report Type: 
  Country: None (occurrence: None)
  Receive Date: 20060823
  Receipt Date: 20060807
  Transmission Date: 20061208
  Serious: Yes (Other)
  Sender: FDA-Public Use
  Company Number: 29764

PATIENT
  Age: 64 Year
  Sex: Female

DRUGS (3)
  1. TAMBOCOR [Suspect]
     Indication: ATRIAL FIBRILLATION
     Dosage: 200 MG (100 MG, 2 IN 1 DAY (S)) ORAL
     Route: 048
  2. PANTOZOL [Concomitant]
  3. ASPIRIN [Concomitant]

REACTIONS (2)
  - AGEUSIA [None]
  - PAROSMIA [None]
